FAERS Safety Report 12927280 (Version 1)
Quarter: 2016Q4

REPORT INFORMATION
  Report Type: Spontaneous
  Country: US (occurrence: US)
  Receive Date: 20161109
  Receipt Date: 20161109
  Transmission Date: 20170207
  Serious: Yes (Other)
  Sender: FDA-Public Use
  Company Number: None

PATIENT
  Age: 50 Year
  Sex: Female

DRUGS (2)
  1. TUBERSOL [Suspect]
     Active Substance: TUBERCULIN PURIFIED PROTEIN DERIVATIVE
     Indication: TUBERCULOSIS
     Dosage: 5 TU/0.1ML
     Route: 023
     Dates: start: 20161026
  2. TUBERSOL [Suspect]
     Active Substance: TUBERCULIN PURIFIED PROTEIN DERIVATIVE
     Indication: INVESTIGATION
     Dosage: 5 TU/0.1ML
     Route: 023
     Dates: start: 20161026

REACTIONS (2)
  - Injection site vesicles [None]
  - Injection site erythema [None]

NARRATIVE: CASE EVENT DATE: 20161028
